FAERS Safety Report 10623442 (Version 1)
Quarter: 2014Q4

REPORT INFORMATION
  Report Type: Spontaneous
  Country: US (occurrence: US)
  Receive Date: 20141203
  Receipt Date: 20141203
  Transmission Date: 20150529
  Serious: Yes (Death, Other)
  Sender: FDA-Public Use
  Company Number: US-CELGENE-USA-2014115311

PATIENT

DRUGS (4)
  1. AZACITIDINE INJECTABLE [Suspect]
     Active Substance: AZACITIDINE
     Indication: ACUTE MYELOID LEUKAEMIA
  2. AZACITIDINE INJECTABLE [Suspect]
     Active Substance: AZACITIDINE
     Indication: MYELODYSPLASTIC SYNDROME
     Route: 065
  3. REVLIMID [Suspect]
     Active Substance: LENALIDOMIDE
     Indication: ACUTE MYELOID LEUKAEMIA
  4. REVLIMID [Suspect]
     Active Substance: LENALIDOMIDE
     Indication: MYELODYSPLASTIC SYNDROME
     Dosage: 50 MILLIGRAM
     Route: 048

REACTIONS (24)
  - Pruritus [Unknown]
  - Pneumonia [Unknown]
  - Leukopenia [Unknown]
  - Acute myeloid leukaemia [Fatal]
  - Injection site reaction [Unknown]
  - Thrombocytopenia [Unknown]
  - Renal failure [Fatal]
  - Fatigue [Unknown]
  - Renal failure [Unknown]
  - Rash [Unknown]
  - Myelodysplastic syndrome [Fatal]
  - Febrile neutropenia [Unknown]
  - Asthenia [Unknown]
  - Constipation [Unknown]
  - Decreased appetite [Unknown]
  - Nausea [Unknown]
  - Hypotension [Unknown]
  - Hypoxia [Unknown]
  - Anaemia [Unknown]
  - Diarrhoea [Unknown]
  - Dizziness [Unknown]
  - Abdominal pain [Unknown]
  - Graft versus host disease [Unknown]
  - Neutropenia [Unknown]
